FAERS Safety Report 24138670 (Version 1)
Quarter: 2024Q3

REPORT INFORMATION
  Report Type: Spontaneous
  Country: US (occurrence: US)
  Receive Date: 20240725
  Receipt Date: 20240725
  Transmission Date: 20241017
  Serious: No
  Sender: DR REDDYS
  Company Number: None

PATIENT
  Age: 11 Year
  Sex: Female

DRUGS (1)
  1. FLUCONAZOLE [Suspect]
     Active Substance: FLUCONAZOLE
     Indication: Pulmonary paracoccidioidomycosis
     Dosage: STARTED ON FLUCONAZOLE 400 MG BY MOUTH DAILY.
     Route: 048

REACTIONS (1)
  - Paronychia [Recovered/Resolved]
